FAERS Safety Report 7535757-4 (Version None)
Quarter: 2011Q2

REPORT INFORMATION
  Report Type: 
  Country: None (occurrence: None)
  Receive Date: 20110609
  Receipt Date: 20110215
  Transmission Date: 20111010
  Serious: No
  Sender: FDA-Public Use
  Company Number: US-KINGPHARMUSA00001-K201100173

PATIENT
  Sex: Male
  Weight: 63.039 kg

DRUGS (7)
  1. ASPIRIN [Concomitant]
  2. AVAPRO [Concomitant]
  3. FLOMAX [Concomitant]
  4. FISH OIL [Concomitant]
  5. EMBEDA [Suspect]
     Indication: BACK PAIN
     Dosage: 50 MG, TID, UNK
     Dates: start: 20100810
  6. PERCOCET [Concomitant]
     Dosage: 7.5/325 MG
  7. SIMVASTATIN [Concomitant]

REACTIONS (4)
  - INTENTIONAL DRUG MISUSE [None]
  - DRUG WITHDRAWAL SYNDROME [None]
  - TREMOR [None]
  - PANIC ATTACK [None]
